FAERS Safety Report 17874233 (Version 2)
Quarter: 2020Q2

REPORT INFORMATION
  Report Type: Spontaneous
  Country: US (occurrence: US)
  Receive Date: 20200609
  Receipt Date: 20200618
  Transmission Date: 20200714
  Serious: No
  Sender: FDA-Public Use
  Company Number: US-GLAXOSMITHKLINE-US2020093720

PATIENT
  Age: 32 Year
  Sex: Female

DRUGS (1)
  1. ABREVA [Suspect]
     Active Substance: DOCOSANOL
     Indication: ORAL HERPES
     Dosage: UNK
     Dates: start: 20200515, end: 20200523

REACTIONS (5)
  - Lip pain [Unknown]
  - Oral herpes [Unknown]
  - Condition aggravated [Unknown]
  - Oral discomfort [Unknown]
  - Lip swelling [Unknown]

NARRATIVE: CASE EVENT DATE: 20200515
